FAERS Safety Report 5750439-7 (Version None)
Quarter: 2008Q2

REPORT INFORMATION
  Report Type: 
  Country: None (occurrence: None)
  Receive Date: 20080528
  Receipt Date: 20070406
  Transmission Date: 20081010
  Serious: No
  Sender: FDA-Public Use
  Company Number: US-KINGPHARMUSA00001-K200700431

PATIENT

DRUGS (1)
  1. AVINZA [Suspect]
     Dosage: 30 MG, UNK
     Route: 048
     Dates: start: 20070402

REACTIONS (3)
  - DYSKINESIA [None]
  - INSOMNIA [None]
  - MAJOR DEPRESSION [None]
